FAERS Safety Report 12561045 (Version 1)
Quarter: 2016Q3

REPORT INFORMATION
  Report Type: Spontaneous
  Country: US (occurrence: None)
  Receive Date: 20160714
  Receipt Date: 20160714
  Transmission Date: 20161109
  Serious: Yes (Death, Hospitalization)
  Sender: FDA-Public Use
  Company Number: None

PATIENT
  Age: 70 Year
  Sex: Male

DRUGS (2)
  1. CARNITOR [Suspect]
     Active Substance: LEVOCARNITINE
     Indication: CARDIOMYOPATHY
     Dosage: 1GM/5ML 3 TIMES A WEEK INTRAVENOUSLY
     Route: 042
     Dates: start: 20160108
  2. CARNITOR [Suspect]
     Active Substance: LEVOCARNITINE
     Indication: END STAGE RENAL DISEASE
     Dosage: 1GM/5ML 3 TIMES A WEEK INTRAVENOUSLY
     Route: 042
     Dates: start: 20160108

REACTIONS (1)
  - Death [None]

NARRATIVE: CASE EVENT DATE: 20160405
